FAERS Safety Report 9690009 (Version 1)
Quarter: 2013Q4

REPORT INFORMATION
  Report Type: Spontaneous
  Country: BR (occurrence: BR)
  Receive Date: 20131115
  Receipt Date: 20131115
  Transmission Date: 20140711
  Serious: Yes (Other)
  Sender: FDA-Public Use
  Company Number: BR-AMGEN-BRASP2013080761

PATIENT
  Age: 56 Year
  Sex: Male
  Weight: 87 kg

DRUGS (2)
  1. ENBREL [Suspect]
     Indication: RHEUMATOID ARTHRITIS
     Dosage: 50 MG, QWK
     Route: 065
     Dates: start: 20120606, end: 20130924
  2. METHOTREXATE [Concomitant]
     Dosage: UNK (STRENGTH 0.6 MG)
     Dates: start: 2011

REACTIONS (3)
  - Syncope [Unknown]
  - Face injury [Unknown]
  - Injection site pain [Unknown]
